FAERS Safety Report 10459247 (Version 3)
Quarter: 2014Q4

REPORT INFORMATION
  Report Type: Spontaneous
  Country: US (occurrence: US)
  Receive Date: 20140917
  Receipt Date: 20141110
  Transmission Date: 20150528
  Serious: Yes (Death, Hospitalization, Other)
  Sender: FDA-Public Use
  Company Number: US-B.I. PHARMACEUTICALS,INC./RIDGEFIELD-2014-BI-43476BP

PATIENT
  Age: 67 Year
  Sex: Male
  Weight: 72.57 kg

DRUGS (5)
  1. ATENOLOL. [Concomitant]
     Active Substance: ATENOLOL
     Indication: PRODUCT USED FOR UNKNOWN INDICATION
     Dosage: 100 MG
     Route: 048
  2. NORVASC [Concomitant]
     Active Substance: AMLODIPINE BESYLATE
     Indication: PRODUCT USED FOR UNKNOWN INDICATION
     Dosage: 5 MG
     Route: 048
  3. ULTRAM [Concomitant]
     Active Substance: TRAMADOL HYDROCHLORIDE
     Indication: PRODUCT USED FOR UNKNOWN INDICATION
     Dosage: 100 MG
     Route: 048
  4. PRADAXA [Suspect]
     Active Substance: DABIGATRAN ETEXILATE MESYLATE
     Indication: PRODUCT USED FOR UNKNOWN INDICATION
     Dosage: 300 MG
     Route: 048
     Dates: end: 20111223
  5. MOBIC [Concomitant]
     Active Substance: MELOXICAM
     Indication: PRODUCT USED FOR UNKNOWN INDICATION
     Dosage: 7.5 MG
     Route: 048

REACTIONS (17)
  - Hypoxic-ischaemic encephalopathy [Fatal]
  - Pneumonia staphylococcal [Recovered/Resolved]
  - Atrial fibrillation [Unknown]
  - Cardiomegaly [Unknown]
  - Delirium tremens [Recovered/Resolved]
  - Granulomatous liver disease [Unknown]
  - Respiratory failure [Fatal]
  - Atelectasis [Unknown]
  - Respiratory failure [Recovered/Resolved]
  - Pleural effusion [Unknown]
  - Aortic dilatation [Unknown]
  - Metabolic encephalopathy [Fatal]
  - Haemothorax [Unknown]
  - Arteriosclerosis [Unknown]
  - Hepatic cyst [Unknown]
  - Malnutrition [Fatal]
  - Bone cyst [Unknown]

NARRATIVE: CASE EVENT DATE: 201112
